APPROVED DRUG PRODUCT: BETAMETHASONE VALERATE
Active Ingredient: BETAMETHASONE VALERATE
Strength: 0.12%
Dosage Form/Route: AEROSOL, FOAM;TOPICAL
Application: A208204 | Product #001 | TE Code: AB
Applicant: TARO PHARMACEUTICAL INDUSTRIES LTD
Approved: May 24, 2017 | RLD: No | RS: Yes | Type: RX